FAERS Safety Report 7005751-0 (Version None)
Quarter: 2010Q3

REPORT INFORMATION
  Report Type: 
  Country: None (occurrence: None)
  Receive Date: 20100921
  Receipt Date: 20100908
  Transmission Date: 20110219
  Serious: Yes (Hospitalization, Other)
  Sender: FDA-Public Use
  Company Number: US-ELI_LILLY_AND_COMPANY-US200910004687

PATIENT
  Sex: Female

DRUGS (7)
  1. FORTEO [Suspect]
     Indication: OSTEOPOROSIS
     Dosage: 20 UG, DAILY (1/D)
     Dates: start: 20090715
  2. DIOVAN HCT [Concomitant]
  3. LEXAPRO [Concomitant]
  4. SIMVASTATIN [Concomitant]
  5. MULTI-VITAMIN [Concomitant]
  6. CALCIUM CARBONATE [Concomitant]
  7. C-VITAMIN [Concomitant]

REACTIONS (17)
  - BACK PAIN [None]
  - BEDRIDDEN [None]
  - BLADDER DISORDER [None]
  - FALL [None]
  - FEELING ABNORMAL [None]
  - IMMOBILE [None]
  - INFECTION [None]
  - INJECTION SITE PRURITUS [None]
  - MENISCUS LESION [None]
  - MONOPARESIS [None]
  - MUSCLE SPASMS [None]
  - MUSCULAR WEAKNESS [None]
  - MUSCULOSKELETAL PAIN [None]
  - OFF LABEL USE [None]
  - ROTATOR CUFF SYNDROME [None]
  - SOMNOLENCE [None]
  - UPPER LIMB FRACTURE [None]
